FAERS Safety Report 18701582 (Version 3)
Quarter: 2021Q1

REPORT INFORMATION
  Report Type: Report from Study
  Country: US (occurrence: US)
  Receive Date: 20210105
  Receipt Date: 20210311
  Transmission Date: 20210419
  Serious: Yes (Death, Hospitalization)
  Sender: FDA-Public Use
  Company Number: US-ROCHE-2734939

PATIENT
  Age: 75 Year
  Sex: Male
  Weight: 97 kg

DRUGS (16)
  1. CARVEDILOL. [Concomitant]
     Active Substance: CARVEDILOL
  2. POLATUZUMAB VEDOTIN. [Suspect]
     Active Substance: POLATUZUMAB VEDOTIN
     Indication: B-CELL LYMPHOMA
     Dosage: AT DOSES OF 1.4 OR 1.8 MILLIGRAMS PER KILOGRAM (MG/KG) ON DAY 1 OF EACH 28?DAY CYCLE FOR UP TO 6 MON
     Route: 042
     Dates: start: 20171004
  3. AMLODIPINE [Concomitant]
     Active Substance: AMLODIPINE BESYLATE
  4. LENALIDOMIDE [Suspect]
     Active Substance: LENALIDOMIDE
     Indication: B-CELL LYMPHOMA
     Dosage: AT DOSES OF 10, 15, OR 20 MILLIGRAMS (MG) ON DAYS 1 TO 21 OF EACH 28?DAY CYCLE FOR UP TO 6 CYCLES IN
     Route: 048
     Dates: start: 20171004
  5. GLUCOPHAGE [Concomitant]
     Active Substance: METFORMIN HYDROCHLORIDE
  6. LEVEMIR [Concomitant]
     Active Substance: INSULIN DETEMIR
  7. SIMVASTATIN. [Concomitant]
     Active Substance: SIMVASTATIN
  8. DULOXETINE. [Concomitant]
     Active Substance: DULOXETINE
  9. CYMBALTA [Concomitant]
     Active Substance: DULOXETINE HYDROCHLORIDE
  10. OBINUTUZUMAB. [Suspect]
     Active Substance: OBINUTUZUMAB
     Indication: B-CELL LYMPHOMA
     Dosage: ON DAYS 1, 8 AND 15 OF CYCLE 1 AND ON DAY 1 OF CYCLES 2 TO 6 FOLLOWED BY POST?INDUCTION TREATMENT AT
     Route: 042
     Dates: start: 20171004
  11. CHLORTHALIDONE. [Concomitant]
     Active Substance: CHLORTHALIDONE
  12. ASPIRIN. [Concomitant]
     Active Substance: ASPIRIN
  13. NOVOLOG [Concomitant]
     Active Substance: INSULIN ASPART
  14. BUDESONIDE. [Concomitant]
     Active Substance: BUDESONIDE
  15. BUSPIRONE [Concomitant]
     Active Substance: BUSPIRONE HYDROCHLORIDE
  16. TOBRAMYCIN SULFATE. [Concomitant]
     Active Substance: TOBRAMYCIN SULFATE

REACTIONS (1)
  - COVID-19 [Fatal]

NARRATIVE: CASE EVENT DATE: 20201212
